FAERS Safety Report 6125143-6 (Version None)
Quarter: 2009Q1

REPORT INFORMATION
  Report Type: 
  Country: None (occurrence: None)
  Receive Date: 20090317
  Receipt Date: 20090302
  Transmission Date: 20090719
  Serious: Yes (Other)
  Sender: FDA-Public Use
  Company Number: 2009S1003791

PATIENT
  Age: 42 Year
  Sex: Female

DRUGS (3)
  1. BUTORPHANOL TARTRATE [Suspect]
     Indication: MIGRAINE
     Dosage: 1 MG, AS NEEDED; NASAL
     Route: 045
     Dates: start: 20070101
  2. TORADOL [Concomitant]
  3. MIGRANAL [Concomitant]

REACTIONS (1)
  - DRUG INEFFECTIVE [None]
